FAERS Safety Report 9812399 (Version 1)
Quarter: 2014Q1

REPORT INFORMATION
  Report Type: Spontaneous
  Country: US (occurrence: US)
  Receive Date: 20140113
  Receipt Date: 20140113
  Transmission Date: 20141002
  Serious: No
  Sender: FDA-Public Use
  Company Number: US-BIOGENIDEC-2014BI000315

PATIENT
  Age: 45 Year
  Sex: Male

DRUGS (2)
  1. TYSABRI [Suspect]
     Indication: MULTIPLE SCLEROSIS
     Route: 042
     Dates: start: 20130520, end: 20130924
  2. TECFIDERA [Concomitant]
     Indication: RELAPSING-REMITTING MULTIPLE SCLEROSIS
     Dates: start: 20131119

REACTIONS (1)
  - Drug specific antibody present [Unknown]
